FAERS Safety Report 8711491 (Version 2)
Quarter: 2012Q4

REPORT INFORMATION
  Report Type: 
  Country: US (occurrence: US)
  Receive Date: 20120807
  Receipt Date: 20120928
  Transmission Date: 20130627
  Serious: Yes (Hospitalization)
  Sender: FDA-Public Use
  Company Number: US-ROCHE-1098257

PATIENT
  Sex: Male

DRUGS (1)
  1. XOLAIR [Suspect]
     Indication: ASTHMA

REACTIONS (5)
  - Pneumonia [Unknown]
  - Middle insomnia [Unknown]
  - Dyspnoea [Unknown]
  - Rib fracture [Unknown]
  - Intestinal ischaemia [Unknown]
